FAERS Safety Report 5400690-0 (Version None)
Quarter: 2007Q3

REPORT INFORMATION
  Report Type: 
  Country: None (occurrence: None)
  Receive Date: 20070730
  Receipt Date: 20070719
  Transmission Date: 20080115
  Serious: No
  Sender: FDA-Public Use
  Company Number: MY-PFIZER INC-2007049096

PATIENT
  Sex: Female

DRUGS (2)
  1. SILDENAFIL (PAH) [Suspect]
     Indication: PULMONARY HYPERTENSION
     Route: 048
  2. MULTIVITAMINS AND IRON [Suspect]
     Route: 048
     Dates: end: 20070101

REACTIONS (1)
  - RASH [None]
